FAERS Safety Report 7373069-2 (Version None)
Quarter: 2011Q1

REPORT INFORMATION
  Report Type: 
  Country: None (occurrence: None)
  Receive Date: 20110314
  Receipt Date: 20110304
  Transmission Date: 20110831
  Serious: Yes (Other)
  Sender: FDA-Public Use
  Company Number: US-1185278

PATIENT
  Sex: Female

DRUGS (1)
  1. DIFLUPREDNATE 0,05% OPHTHALMIC EMULSION [Suspect]
     Indication: POSTOPERATIVE CARE
     Dosage: 1 GTT QID, TO AFFECTED EYE OPHTHALMIC)
     Route: 047

REACTIONS (1)
  - ULCERATIVE KERATITIS [None]
